FAERS Safety Report 8566569-0 (Version None)
Quarter: 2012Q3

REPORT INFORMATION
  Report Type: 
  Country: None (occurrence: None)
  Receive Date: 20120803
  Receipt Date: 20120725
  Transmission Date: 20120928
  Serious: Yes (Hospitalization)
  Sender: FDA-Public Use
  Company Number: US-UCBSA-023504

PATIENT
  Age: 43 Year
  Sex: Female
  Weight: 63 kg

DRUGS (7)
  1. CIMZIA [Suspect]
     Route: 058
     Dates: start: 20100506
  2. AZATHIOPRINE [Concomitant]
     Dates: start: 20100101
  3. CIMZIA [Suspect]
     Indication: CROHN'S DISEASE
     Route: 058
     Dates: start: 20090312, end: 20100422
  4. CORTIFOAM [Concomitant]
     Indication: CROHN'S DISEASE
     Dates: start: 20090701
  5. AZATHIOPRINE [Concomitant]
     Indication: CROHN'S DISEASE
     Dates: start: 20040101, end: 20070301
  6. CIMZIA [Suspect]
     Indication: DRUG INEFFECTIVE
     Route: 058
     Dates: start: 20090312, end: 20100422
  7. CIMZIA [Suspect]
     Route: 058
     Dates: start: 20100506

REACTIONS (1)
  - PNEUMONIA [None]
